FAERS Safety Report 7490165-X (Version None)
Quarter: 2011Q2

REPORT INFORMATION
  Report Type: 
  Country: None (occurrence: None)
  Receive Date: 20110519
  Receipt Date: 20110421
  Transmission Date: 20111010
  Serious: Yes (Hospitalization, Other)
  Sender: FDA-Public Use
  Company Number: US-BAYER-201030488NA

PATIENT
  Age: 46 Year
  Sex: Female
  Weight: 74.83 kg

DRUGS (3)
  1. ZOVIRAX [Concomitant]
  2. YAZ [Suspect]
     Indication: MENORRHAGIA
     Dosage: UNK
     Route: 048
     Dates: start: 20080301, end: 20080901
  3. RECLIPSEN [Concomitant]

REACTIONS (3)
  - GALLBLADDER NON-FUNCTIONING [None]
  - CHOLECYSTITIS [None]
  - DIARRHOEA [None]
